FAERS Safety Report 7253823-8 (Version None)
Quarter: 2011Q1

REPORT INFORMATION
  Report Type: 
  Country: None (occurrence: None)
  Receive Date: 20110129
  Receipt Date: 20100426
  Transmission Date: 20110831
  Serious: No
  Sender: FDA-Public Use
  Company Number: US-ABBOTT-10P-163-0640675-00

PATIENT
  Sex: Female
  Weight: 77.18 kg

DRUGS (11)
  1. NORVASC [Concomitant]
     Indication: HYPERTENSION
  2. OMEPRAZOLE [Concomitant]
     Indication: GASTROOESOPHAGEAL REFLUX DISEASE
  3. HUMIRA [Suspect]
     Indication: RHEUMATOID ARTHRITIS
     Dates: start: 20090101
  4. COLCHICINE [Concomitant]
     Indication: GOUT
  5. PRAVASTATIN [Concomitant]
     Indication: BLOOD CHOLESTEROL INCREASED
  6. ALLEGRA [Concomitant]
     Indication: HYPERSENSITIVITY
  7. ALLOPURINOL [Concomitant]
     Indication: GOUT
  8. FOLIC ACID [Concomitant]
     Indication: RHEUMATOID ARTHRITIS
  9. METHOTREXATE [Concomitant]
     Indication: RHEUMATOID ARTHRITIS
  10. DIOVAN HCT [Concomitant]
     Indication: HYPERTENSION
  11. ZETIA [Concomitant]
     Indication: BLOOD CHOLESTEROL INCREASED

REACTIONS (6)
  - PAIN IN EXTREMITY [None]
  - ARTHRALGIA [None]
  - RHEUMATOID ARTHRITIS [None]
  - ARTHROPATHY [None]
  - GAIT DISTURBANCE [None]
  - DRUG DOSE OMISSION [None]
